FAERS Safety Report 7051271-7 (Version None)
Quarter: 2010Q4

REPORT INFORMATION
  Report Type: 
  Country: None (occurrence: None)
  Receive Date: 20101019
  Receipt Date: 20101014
  Transmission Date: 20110411
  Serious: Yes (Life-Threatening, Hospitalization)
  Sender: FDA-Public Use
  Company Number: JP-NOVOPROD-315572

PATIENT
  Age: 84 Year
  Sex: Female
  Weight: 33 kg

DRUGS (4)
  1. VICTOZA [Suspect]
     Indication: TYPE 2 DIABETES MELLITUS
     Dosage: 0.3-0.6 MG
     Route: 058
     Dates: start: 20100907, end: 20100926
  2. NOVORAPID CHU [Concomitant]
     Dosage: 6-4-6
  3. LANTUS [Concomitant]
     Indication: TYPE 2 DIABETES MELLITUS
     Dosage: 10 UNITS
     Route: 058
     Dates: end: 20100920
  4. AMARYL [Concomitant]
     Indication: TYPE 2 DIABETES MELLITUS
     Dosage: 1 MG, QD
     Route: 048
     Dates: start: 20100924, end: 20100926

REACTIONS (2)
  - DEHYDRATION [None]
  - DIABETIC HYPERGLYCAEMIC COMA [None]
